FAERS Safety Report 8131621-0 (Version None)
Quarter: 2012Q1

REPORT INFORMATION
  Report Type: 
  Country: None (occurrence: None)
  Receive Date: 20120213
  Receipt Date: 20120131
  Transmission Date: 20120608
  Serious: Yes (Hospitalization)
  Sender: FDA-Public Use
  Company Number: US-CELGENEUS-163-21880-11122468

PATIENT
  Sex: Male
  Weight: 117.59 kg

DRUGS (20)
  1. COUMADIN [Concomitant]
     Route: 065
  2. METFORMIN HCL [Concomitant]
     Route: 065
  3. PRAVASTATIN [Concomitant]
     Route: 065
  4. ASPIRIN [Concomitant]
     Dosage: 81 MILLIGRAM
     Route: 065
  5. NITROGLYCERIN [Concomitant]
     Route: 065
  6. REVLIMID [Suspect]
     Indication: MULTIPLE MYELOMA
     Dosage: 15 MILLIGRAM
     Route: 048
     Dates: start: 20110608
  7. VITAMIN B-12 [Concomitant]
     Route: 065
  8. LISINOPRIL [Concomitant]
     Dosage: 2.5 MILLIGRAM
     Route: 065
  9. ZITHROMAX [Concomitant]
     Route: 065
  10. FINASTERIDE [Concomitant]
     Route: 065
  11. PRILOSEC [Concomitant]
     Route: 065
  12. ALLOPURINOL [Concomitant]
     Route: 065
  13. HUMULIN R [Concomitant]
     Dosage: 20 IU (INTERNATIONAL UNIT)
     Route: 065
  14. GLYBURIDE [Concomitant]
     Dosage: 5 MILLIGRAM
     Route: 065
  15. CARDURA [Concomitant]
     Route: 065
  16. FERROUS SULFATE TAB [Concomitant]
     Dosage: 325 MILLIGRAM
     Route: 048
  17. DEXAMETHASONE [Concomitant]
     Dosage: 20 MILLIGRAM
     Route: 065
  18. LYRICA [Concomitant]
     Route: 065
  19. NEUPOGEN [Concomitant]
     Indication: NEUTROPENIA
     Route: 065
     Dates: start: 20120101
  20. REVLIMID [Suspect]
     Dosage: 10 MILLIGRAM
     Route: 048
     Dates: start: 20120101

REACTIONS (2)
  - CHEST PAIN [None]
  - ATRIAL FLUTTER [None]
